FAERS Safety Report 8573722-9 (Version None)
Quarter: 2012Q3

REPORT INFORMATION
  Report Type: 
  Country: None (occurrence: None)
  Receive Date: 20120806
  Receipt Date: 20120730
  Transmission Date: 20120928
  Serious: Yes (Hospitalization)
  Sender: FDA-Public Use
  Company Number: US-GLAXOSMITHKLINE-A0988151A

PATIENT
  Age: 71 Year
  Sex: Male

DRUGS (1)
  1. FLOLAN [Suspect]
     Indication: PRODUCT USED FOR UNKNOWN INDICATION
     Dosage: 37NGKM CONTINUOUS
     Route: 042
     Dates: start: 20051024

REACTIONS (3)
  - HEART RATE IRREGULAR [None]
  - PYREXIA [None]
  - DYSPNOEA [None]
